FAERS Safety Report 7107919-1 (Version None)
Quarter: 2010Q4

REPORT INFORMATION
  Report Type: 
  Country: None (occurrence: None)
  Receive Date: 20101117
  Receipt Date: 20101108
  Transmission Date: 20110411
  Serious: Yes (Hospitalization)
  Sender: FDA-Public Use
  Company Number: US-ASTRAZENECA-2010SE53322

PATIENT
  Sex: Female

DRUGS (1)
  1. NOLVADEX [Suspect]
     Route: 048
     Dates: start: 20070101, end: 20101001

REACTIONS (2)
  - DRUG DOSE OMISSION [None]
  - PLASTIC SURGERY [None]
